FAERS Safety Report 5579803-6 (Version None)
Quarter: 2008Q1

REPORT INFORMATION
  Report Type: 
  Country: None (occurrence: None)
  Receive Date: 20080102
  Receipt Date: 20071221
  Transmission Date: 20080703
  Serious: Yes (Other)
  Sender: FDA-Public Use
  Company Number: US-PFIZER INC-2007107819

PATIENT
  Sex: Female
  Weight: 102.1 kg

DRUGS (4)
  1. DILANTIN [Suspect]
     Indication: CONVULSION
     Route: 048
  2. PLAQUENIL [Concomitant]
  3. COUMADIN [Concomitant]
  4. DRUG, UNSPECIFIED [Concomitant]

REACTIONS (3)
  - INSOMNIA [None]
  - MUSCLE TIGHTNESS [None]
  - MUSCLE TWITCHING [None]
